FAERS Safety Report 26067198 (Version 1)
Quarter: 2025Q4

REPORT INFORMATION
  Report Type: Spontaneous
  Country: US (occurrence: US)
  Receive Date: 20251119
  Receipt Date: 20251119
  Transmission Date: 20260118
  Serious: No
  Sender: ASTELLAS
  Company Number: US-ASTELLAS-2025-AER-059312

PATIENT
  Age: 17 Year
  Sex: Female

DRUGS (2)
  1. TACROLIMUS [Suspect]
     Active Substance: TACROLIMUS
     Indication: Liver transplant
     Route: 065
     Dates: start: 2020, end: 2020
  2. TACROLIMUS [Suspect]
     Active Substance: TACROLIMUS
     Route: 065
     Dates: start: 2020

REACTIONS (1)
  - Immunosuppressant drug level decreased [Recovered/Resolved]

NARRATIVE: CASE EVENT DATE: 20200101
